FAERS Safety Report 7716828-6 (Version None)
Quarter: 2011Q3

REPORT INFORMATION
  Report Type: 
  Country: None (occurrence: None)
  Receive Date: 20110829
  Receipt Date: 20110819
  Transmission Date: 20111222
  Serious: Yes (Other)
  Sender: FDA-Public Use
  Company Number: US-ASTRAZENECA-2011SE50145

PATIENT
  Sex: Male

DRUGS (32)
  1. NEXIUM [Suspect]
     Indication: GASTROOESOPHAGEAL REFLUX DISEASE
     Route: 048
     Dates: start: 20100113
  2. ASTEPRO [Concomitant]
     Indication: RHINITIS ALLERGIC
     Dosage: 2 SPRAYS IN EACH NOSTRIL TWICE DAILY
     Dates: start: 20100524
  3. FIORICET [Concomitant]
     Dosage: 50-325-40 MG, 1 TABLET QID/PRN
     Dates: start: 20101209
  4. BENEFIBER [Concomitant]
     Indication: CONSTIPATION
     Dosage: 1 TBSP TWICE DAILY
     Dates: start: 20100628
  5. HYDROCODONE BITARTRATE/HOMATROPINE METHYBROMIDE [Concomitant]
     Indication: BRONCHITIS
     Dosage: 5-1.5 MG/5 ML, 5 ML EVERY FOUR HOURS, AS NEEDED FOR COUGH
     Dates: start: 20110103
  6. PRAVASTATIN SODIUM [Concomitant]
     Indication: DEPRESSION
     Dates: start: 20110811
  7. APPLE CIDER VINEGAR [Concomitant]
     Route: 048
  8. NASONEX [Concomitant]
     Indication: RHINITIS ALLERGIC
     Dosage: 50 MG/ACTUATION, TWO SQUIRTS EACH NOSTRIL DAILY
     Dates: start: 20100603
  9. GABAPENTIN [Concomitant]
     Indication: NEURALGIA
     Dates: start: 20101230
  10. TYLENOL W/ CODEINE [Concomitant]
     Indication: NEURALGIA
     Dosage: 300-30 MG, 1 TABLET THREE TIMES A DAY PRN
     Dates: start: 20101229
  11. LYRICA [Concomitant]
     Indication: HERPES ZOSTER
     Dosage: 1 DF IN THE MORNING, 1 DF IN THE AFTERNOON, 2 DF AT NIGHT
     Dates: start: 20100726
  12. GABAPENTIN [Concomitant]
     Indication: NEURITIS
     Dates: start: 20101230
  13. PERCOCET [Concomitant]
     Indication: NEURITIS
     Dosage: 10-325 MG, EVERY 6 HOURS AS NEEDED FOR PAIN
     Dates: start: 20101115
  14. GARLIC [Concomitant]
     Route: 048
  15. ASPIRIN [Concomitant]
     Dosage: DAILY
  16. LIDOCAINE OINTMENT [Concomitant]
     Indication: HERPES ZOSTER
     Dosage: TWICE A DAY
     Dates: start: 20091230
  17. SINGULAIR [Concomitant]
     Indication: RHINITIS ALLERGIC
     Dates: start: 20110811
  18. CYMBALTA [Concomitant]
     Dosage: 2 CAPSULES IN AM, 1 CAPSULE IN PM, DAILY
     Dates: start: 20110811
  19. VITAMIN D [Concomitant]
     Dosage: 1000 UNIT TABLET DAILY
     Route: 048
  20. PERCOCET [Concomitant]
     Indication: NEURALGIA
     Dosage: 10-325 MG, EVERY 6 HOURS AS NEEDED FOR PAIN
     Dates: start: 20101115
  21. PHENAZOPYRIDINE HCL TAB [Concomitant]
     Indication: CALCULUS URETERIC
     Dosage: 1 TABLET THREE TIMES DAILY, AS NEEDED
     Dates: start: 20091023
  22. MECLIZINE HCL [Concomitant]
     Indication: VERTIGO POSITIONAL
     Dosage: 1 TABLET THREE TID, PRN WHEN DIZZINESS
     Dates: start: 20100629
  23. BUTALBITAL ACETAMINOPHEN AND CAFFEINE [Concomitant]
     Dosage: 50-325-40 MG, FOUR TIMES A DAY, AS NEEDED
     Route: 048
     Dates: start: 20110622
  24. AGGRENOX [Concomitant]
     Indication: TRANSIENT ISCHAEMIC ATTACK
     Dosage: 25-200 MG, TWO TIMES DAILY
     Dates: start: 20110614
  25. RAPAFLO [Concomitant]
     Dosage: DAILY
  26. DETROL LA [Concomitant]
     Indication: PYREXIA
     Dosage: DAILY, AS NEEDED FOR BLADDER SPASMS
     Dates: start: 20091109
  27. LIDODERM [Concomitant]
     Indication: HERPES ZOSTER
     Dosage: 3 PATCHES TO AFFECTED AREA DAILY FOR 12 HOURS THEN REMOVE
     Dates: start: 20100628
  28. TYLENOL W/ CODEINE [Concomitant]
     Indication: NEURITIS
     Dosage: 300-30 MG, 1 TABLET THREE TIMES A DAY PRN
     Dates: start: 20101229
  29. CLONAZEPAM [Concomitant]
     Indication: ANXIETY
     Dosage: 1 TABLET DAILY PRN
     Dates: start: 20110614
  30. LOSARTAN POTASSIUM [Concomitant]
     Indication: ESSENTIAL HYPERTENSION
     Dates: start: 20110811
  31. RAPAFLO [Concomitant]
     Indication: URINARY TRACT INFECTION
     Dates: start: 20110811
  32. CENTRUM SILVER [Concomitant]
     Route: 048

REACTIONS (12)
  - VERTIGO POSITIONAL [None]
  - NEURALGIA [None]
  - DEPRESSION [None]
  - TRANSIENT ISCHAEMIC ATTACK [None]
  - RHINITIS ALLERGIC [None]
  - BRONCHITIS [None]
  - ANXIETY [None]
  - URINARY TRACT INFECTION [None]
  - CONSTIPATION [None]
  - NEURITIS [None]
  - ESSENTIAL HYPERTENSION [None]
  - HERPES ZOSTER [None]
